FAERS Safety Report 14003203 (Version 1)
Quarter: 2017Q3

REPORT INFORMATION
  Report Type: Spontaneous
  Country: US (occurrence: US)
  Receive Date: 20170922
  Receipt Date: 20170922
  Transmission Date: 20171128
  Serious: No
  Sender: FDA-Public Use
  Company Number: US-MAYNE PHARMA-2017MYN000017

PATIENT
  Age: 71 Year
  Weight: 75.74 kg

DRUGS (11)
  1. AMLODIPINE BESYLATE AND VALSARTAN [Concomitant]
     Active Substance: AMLODIPINE BESYLATE\VALSARTAN
  2. VIAGRA [Concomitant]
     Active Substance: SILDENAFIL CITRATE
  3. ATORVASTATIN [Concomitant]
     Active Substance: ATORVASTATIN
  4. CLONIDINE. [Suspect]
     Active Substance: CLONIDINE
     Indication: HYPERTENSION
     Dosage: ONE PATCH A WEEK
     Route: 061
     Dates: start: 20170107, end: 20170109
  5. FUROSEMIDE. [Concomitant]
     Active Substance: FUROSEMIDE
     Dosage: UNK MG, UNK
  6. ASPIRIN                            /00002701/ [Concomitant]
     Active Substance: ASPIRIN
  7. PREDNISONE. [Concomitant]
     Active Substance: PREDNISONE
  8. LEVOTHYROXINE. [Concomitant]
     Active Substance: LEVOTHYROXINE
     Dosage: UNK
  9. MYCOPHENOLATE [Concomitant]
     Active Substance: MYCOPHENOLIC ACID
  10. KLOR-CON M10 [Concomitant]
     Active Substance: POTASSIUM CHLORIDE
  11. SERTRALINE [Concomitant]
     Active Substance: SERTRALINE HYDROCHLORIDE

REACTIONS (4)
  - Peripheral swelling [Recovering/Resolving]
  - Pain in extremity [Recovered/Resolved]
  - Dyspnoea [Recovered/Resolved]
  - Angina pectoris [Recovered/Resolved]

NARRATIVE: CASE EVENT DATE: 20170107
